FAERS Safety Report 4700361-X (Version None)
Quarter: 2005Q2

REPORT INFORMATION
  Report Type: 
  Country: None (occurrence: None)
  Receive Date: 20050209
  Receipt Date: 20050209
  Transmission Date: 20051028
  Serious: No
  Sender: FDA-Public Use
  Company Number: None

PATIENT
  Age: 80 Year
  Sex: Female

DRUGS (1)
  1. KLONOPIN [Suspect]
     Indication: RESTLESS LEGS SYNDROME
     Dosage: 1MG QHS

REACTIONS (3)
  - CONDITION AGGRAVATED [None]
  - RESTLESS LEGS SYNDROME [None]
  - THERAPEUTIC RESPONSE UNEXPECTED WITH DRUG SUBSTITUTION [None]
